FAERS Safety Report 9026738 (Version 3)
Quarter: 2013Q1

REPORT INFORMATION
  Report Type: Spontaneous
  Country: US (occurrence: None)
  Receive Date: 20130107
  Receipt Date: 20130122
  Transmission Date: 20140127
  Serious: Yes (Other)
  Sender: FDA-Public Use
  Company Number: 2011029840

PATIENT
  Sex: Male
  Weight: 95.26 kg

DRUGS (15)
  1. HIZENTRA (IMMUNOGLOBULIN HUMAN NORMAL) [Suspect]
     Indication: IMMUNODEFICIENCY COMMON VARIABLE
     Dosage: 14 G 1X/WEEK, INFUSED VIA 3-5 SITES OVER 1-2 HOURS
     Route: 058
     Dates: start: 20110412
  2. HIZENTRA (IMMUNOGLOBULIN HUMAN NORMAL) [Suspect]
     Indication: BRONCHIECTASIS
     Dosage: 14 G 1X/WEEK, INFUSED VIA 3-5 SITES OVER 1-2 HOURS
     Route: 058
     Dates: start: 20110412
  3. PREDNISONE (PREDNISONE) [Concomitant]
  4. NASONEX (MOMETASONE FUROATE) [Concomitant]
  5. PRAVASTATIN (PRAVASTATIN) [Concomitant]
  6. ITRACONAZOLE (ITRACONAZOLE) [Concomitant]
  7. PULMICORT (BUDESONIDE) [Concomitant]
  8. THEOPHYLLINE (THEOPHYLLINE) [Concomitant]
  9. TUSSIONEX (TUSSIONEX /00140501/) [Concomitant]
  10. BANOPHEN (DIPHENHYDRAMINE HYDROCHLORIDE) [Concomitant]
  11. EPIPEN (EPINEPHRINE) [Concomitant]
  12. LMX (LIDOCAINE) [Concomitant]
  13. DUONEB (COMBIVENT /01261001/) [Concomitant]
  14. CALCIUM VITAMIN D (CALCIUM WITH VITAMIN D) [Concomitant]
  15. CLARITIN D (NARINE) [Concomitant]

REACTIONS (7)
  - Cough [None]
  - Insomnia [None]
  - Pain in extremity [None]
  - Abasia [None]
  - Off label use [None]
  - Infusion site bruising [None]
  - Pain in extremity [None]
